FAERS Safety Report 5498583-6 (Version None)
Quarter: 2007Q4

REPORT INFORMATION
  Report Type: 
  Country: None (occurrence: None)
  Receive Date: 20071024
  Receipt Date: 20071024
  Transmission Date: 20080405
  Serious: Yes (Disabling)
  Sender: FDA-Public Use
  Company Number: None

PATIENT
  Sex: Female
  Weight: 93.6678 kg

DRUGS (1)
  1. ISONIAZID [Suspect]
     Dosage: 300MG  DAILY  PO
     Route: 048
     Dates: start: 20070827, end: 20070925

REACTIONS (1)
  - PANCREATITIS [None]
